FAERS Safety Report 21734351 (Version 1)
Quarter: 2022Q4

REPORT INFORMATION
  Report Type: Spontaneous
  Country: FR (occurrence: FR)
  Receive Date: 20221215
  Receipt Date: 20221215
  Transmission Date: 20230113
  Serious: Yes (Life-Threatening)
  Sender: FDA-Public Use
  Company Number: FR-GALTPHARMA-2022-FR-000249

PATIENT
  Age: 54 Year
  Sex: Male
  Weight: 53 kg

DRUGS (6)
  1. MICONAZOLE [Suspect]
     Active Substance: MICONAZOLE
     Indication: Fungal infection
     Dosage: 50 MG
     Route: 048
     Dates: start: 20221113, end: 20221114
  2. ZOPICLONE [Suspect]
     Active Substance: ZOPICLONE
     Dosage: 7.5 MG
     Route: 048
     Dates: start: 20221026
  3. MORPHINE SULFATE [Suspect]
     Active Substance: MORPHINE SULFATE
     Dosage: 10 MG
     Route: 048
  4. METHADONE HYDROCHLORIDE [Suspect]
     Active Substance: METHADONE HYDROCHLORIDE
     Dosage: 60 MG
     Route: 048
  5. DIAZEPAM [Suspect]
     Active Substance: DIAZEPAM
     Dosage: 20 MILLIGRAM
     Route: 048
     Dates: start: 20221102, end: 20221113
  6. FENTANYL [Suspect]
     Active Substance: FENTANYL
     Dosage: 12 MICROGRAM, TRANSDERMAL
     Route: 050
     Dates: start: 20221024, end: 20221113

REACTIONS (4)
  - Drug interaction [Recovering/Resolving]
  - Respiratory distress [Recovering/Resolving]
  - Drug interaction [Recovering/Resolving]
  - Vomiting [Recovering/Resolving]

NARRATIVE: CASE EVENT DATE: 20221115
